FAERS Safety Report 9185269 (Version 1)
Quarter: 2012Q4

REPORT INFORMATION
  Report Type: 
  Country: CN (occurrence: CN)
  Receive Date: 20121101
  Receipt Date: 20121101
  Transmission Date: 20130627
  Serious: Yes (Other)
  Sender: FDA-Public Use
  Company Number: CN-PFIZER INC-2012270986

PATIENT
  Age: 49 Year
  Sex: Male

DRUGS (2)
  1. SUTENT [Suspect]
     Indication: RENAL CELL CARCINOMA
     Dosage: 50 mg, once daily
     Route: 048
     Dates: start: 20120829, end: 20120904
  2. SUTENT [Suspect]
     Dosage: 25 mg, once daily
     Route: 048
     Dates: start: 20120905, end: 20120911

REACTIONS (3)
  - Deafness unilateral [Not Recovered/Not Resolved]
  - Hypertension [Unknown]
  - VIIth nerve paralysis [Not Recovered/Not Resolved]
